FAERS Safety Report 6914598-2 (Version None)
Quarter: 2010Q3

REPORT INFORMATION
  Report Type: 
  Country: None (occurrence: None)
  Receive Date: 20100809
  Receipt Date: 20100730
  Transmission Date: 20110219
  Serious: Yes (Hospitalization)
  Sender: FDA-Public Use
  Company Number: US-CELGENEUS-163-21880-10070836

PATIENT
  Sex: Male
  Weight: 111 kg

DRUGS (5)
  1. REVLIMID [Suspect]
     Indication: PROSTATE CANCER
     Route: 048
     Dates: start: 20080417, end: 20100701
  2. KETOCONOZOLE [Suspect]
     Indication: PROSTATE CANCER
     Route: 048
     Dates: start: 20080417, end: 20100708
  3. WARFARIN SODIUM [Concomitant]
     Indication: ANTICOAGULANT THERAPY
     Route: 048
  4. WARFARIN SODIUM [Concomitant]
     Route: 048
  5. PREVACID [Concomitant]
     Route: 065

REACTIONS (3)
  - HAEMOGLOBIN DECREASED [None]
  - INTERNATIONAL NORMALISED RATIO INCREASED [None]
  - OESOPHAGITIS [None]
